FAERS Safety Report 8960915 (Version 3)
Quarter: 2013Q1

REPORT INFORMATION
  Report Type: Spontaneous
  Country: GB (occurrence: GB)
  Receive Date: 20121212
  Receipt Date: 20130220
  Transmission Date: 20140127
  Serious: Yes (Hospitalization)
  Sender: FDA-Public Use
  Company Number: GB-CELGENEUS-167-50794-12120037

PATIENT
  Age: 78 Year
  Sex: Female
  Weight: 63.9 kg

DRUGS (7)
  1. VIDAZA [Suspect]
     Indication: MYELODYSPLASTIC SYNDROME
     Route: 065
     Dates: start: 20121001, end: 20121009
  2. VIDAZA [Suspect]
     Route: 065
     Dates: start: 20121203, end: 20121211
  3. VIDAZA [Suspect]
     Route: 065
     Dates: start: 20120830
  4. ITRACONAZOLE [Concomitant]
     Indication: PROPHYLAXIS
     Dosage: 400 MILLIGRAM
     Route: 065
     Dates: start: 20120730, end: 20121116
  5. AMITRIPTYLINE [Concomitant]
     Indication: PRODUCT USED FOR UNKNOWN INDICATION
     Dosage: 10 MILLIGRAM
     Route: 065
  6. FLUOXETINE [Concomitant]
     Indication: PRODUCT USED FOR UNKNOWN INDICATION
     Dosage: 40 MILLIGRAM
     Route: 065
     Dates: start: 2011
  7. LOPERAMIDE [Concomitant]
     Indication: PRODUCT USED FOR UNKNOWN INDICATION
     Dosage: 2 MILLIGRAM
     Route: 065
     Dates: start: 2011

REACTIONS (4)
  - Sepsis [Recovered/Resolved]
  - Neutropenic sepsis [Recovered/Resolved]
  - Liver function test abnormal [Recovered/Resolved]
  - Liver function test abnormal [Recovered/Resolved]
